FAERS Safety Report 4281513-2 (Version None)
Quarter: 2004Q1

REPORT INFORMATION
  Report Type: 
  Country: None (occurrence: None)
  Receive Date: 20040112
  Receipt Date: 20030827
  Transmission Date: 20041129
  Serious: Yes (Hospitalization, Other)
  Sender: FDA-Public Use
  Company Number: US-JNJFOC-20030704521

PATIENT
  Age: 57 Year
  Sex: Female
  Weight: 65.8 kg

DRUGS (2)
  1. REOPRO [Suspect]
     Indication: ACUTE MYOCARDIAL INFARCTION
     Dosage: 8.2 ML, 1 IN 1 TOTAL
  2. HEPARIN [Concomitant]

REACTIONS (3)
  - DIABETES MELLITUS [None]
  - PULMONARY HAEMORRHAGE [None]
  - THROMBOCYTOPENIA [None]
